FAERS Safety Report 5314046-2 (Version None)
Quarter: 2007Q2

REPORT INFORMATION
  Report Type: 
  Country: None (occurrence: None)
  Receive Date: 20070501
  Receipt Date: 20070320
  Transmission Date: 20071010
  Serious: Yes (Hospitalization, Other)
  Sender: FDA-Public Use
  Company Number: US-PFIZER INC-2007022948

PATIENT
  Sex: Male
  Weight: 83.9 kg

DRUGS (1)
  1. BEXTRA [Suspect]
     Indication: BACK PAIN

REACTIONS (3)
  - ANXIETY [None]
  - CORONARY ARTERY DISEASE [None]
  - MYOCARDIAL INFARCTION [None]
